FAERS Safety Report 4412808-7 (Version None)
Quarter: 2004Q3

REPORT INFORMATION
  Report Type: 
  Country: None (occurrence: None)
  Receive Date: 20040727
  Receipt Date: 20040720
  Transmission Date: 20050211
  Serious: No
  Sender: FDA-Public Use
  Company Number: TAP2004Q00916

PATIENT
  Age: 88 Year
  Sex: Male

DRUGS (9)
  1. NAPRAPAC 500 (COPACKAGED) [Suspect]
     Indication: ARTHRITIS
     Dosage: 1 CARD, 1 IN 1 WK, PER ORAL
     Route: 048
     Dates: start: 20040201, end: 20040501
  2. NAPRAPAC 500 (COPACKAGED) [Suspect]
     Indication: PAIN
     Dosage: 1 CARD, 1 IN 1 WK, PER ORAL
     Route: 048
     Dates: start: 20040201, end: 20040501
  3. NAPRAPAC 500 (COPACKAGED) [Suspect]
     Indication: ARTHRITIS
     Dosage: 1 CARD, 1 IN 1 WK, PER ORAL
     Route: 048
     Dates: start: 20040601
  4. NAPRAPAC 500 (COPACKAGED) [Suspect]
     Indication: PAIN
     Dosage: 1 CARD, 1 IN 1 WK, PER ORAL
     Route: 048
     Dates: start: 20040601
  5. ADVAIR (SERETIDE MITE) [Concomitant]
  6. ZESTRIL [Concomitant]
  7. LIPITOR [Concomitant]
  8. SPIRIVA [Concomitant]
  9. ASPIRIN [Concomitant]

REACTIONS (11)
  - ARTHRITIS [None]
  - CATARACT [None]
  - DISEASE RECURRENCE [None]
  - DISTURBANCE IN ATTENTION [None]
  - LACRIMATION INCREASED [None]
  - OEDEMA PERIPHERAL [None]
  - RASH ERYTHEMATOUS [None]
  - RASH PRURITIC [None]
  - SOMNOLENCE [None]
  - VENOUS INSUFFICIENCY [None]
  - VISUAL DISTURBANCE [None]
